FAERS Safety Report 25904709 (Version 2)
Quarter: 2025Q4

REPORT INFORMATION
  Report Type: Spontaneous
  Country: EU (occurrence: EU)
  Receive Date: 20251010
  Receipt Date: 20251022
  Transmission Date: 20260118
  Serious: Yes (Other)
  Sender: SANOFI AVENTIS
  Company Number: EU-SA-SAC20210305000407

PATIENT
  Age: 67 Year
  Sex: Male

DRUGS (10)
  1. NOREPINEPHRINE [Suspect]
     Active Substance: NOREPINEPHRINE
     Indication: Acute respiratory distress syndrome
     Dosage: 50-300 UG/H
     Route: 042
     Dates: end: 20200421
  2. PROPOFOL [Suspect]
     Active Substance: PROPOFOL
     Indication: Acute respiratory distress syndrome
     Dosage: 60?240 MG/H
     Route: 042
     Dates: start: 20200319, end: 20200404
  3. PANTOPRAZOLE [Suspect]
     Active Substance: PANTOPRAZOLE
     Indication: Acute respiratory distress syndrome
     Dosage: 40 MG, QD
     Route: 042
     Dates: end: 20200423
  4. POLYETHYLENE GLYCOLS [Suspect]
     Active Substance: POLYETHYLENE GLYCOLS
     Indication: Acute respiratory distress syndrome
     Dosage: 13 G, QD (VIA FEEDING TUBE)
     Route: 049
     Dates: end: 20200423
  5. METOCLOPRAMIDE HYDROCHLORIDE [Suspect]
     Active Substance: METOCLOPRAMIDE HYDROCHLORIDE
     Indication: Acute respiratory distress syndrome
     Dosage: 10 MG, QD
     Route: 042
     Dates: end: 20200417
  6. ENOXAPARIN SODIUM [Suspect]
     Active Substance: ENOXAPARIN SODIUM
     Indication: Acute respiratory distress syndrome
     Dosage: 10 MG, QD
  7. ENOXAPARIN SODIUM [Suspect]
     Active Substance: ENOXAPARIN SODIUM
     Dosage: 40 MG, QD
     Route: 058
     Dates: end: 20200423
  8. SUFENTANIL [Suspect]
     Active Substance: SUFENTANIL
     Indication: Acute respiratory distress syndrome
     Dosage: 50-100 UG/H
     Route: 042
     Dates: start: 20200319, end: 20200423
  9. REMDESIVIR [Suspect]
     Active Substance: REMDESIVIR
     Indication: COVID-19
     Dosage: 200 MG, QD
     Route: 042
     Dates: start: 20200326, end: 20200326
  10. REMDESIVIR [Suspect]
     Active Substance: REMDESIVIR
     Indication: Acute respiratory distress syndrome
     Dosage: 100 MG, QD
     Route: 042
     Dates: start: 20200327, end: 20200329

REACTIONS (4)
  - Symmetrical drug-related intertriginous and flexural exanthema [Recovered/Resolved]
  - Rash macular [Recovered/Resolved]
  - Rash [Recovered/Resolved]
  - Blister [Recovered/Resolved]

NARRATIVE: CASE EVENT DATE: 20200330
